FAERS Safety Report 7936874 (Version 2)
Quarter: 2013Q2

REPORT INFORMATION
  Report Type: Report from Study
  Country: US (occurrence: US)
  Receive Date: 20110509
  Receipt Date: 20130408
  Transmission Date: 20140414
  Serious: Yes (Other)
  Sender: FDA-Public Use
  Company Number: US-ASTRAZENECA-2011SE24400

PATIENT
  Age: 9907 Day
  Sex: Male
  Weight: 89.4 kg

DRUGS (11)
  1. ZD6474 [Suspect]
     Indication: GLIOBLASTOMA
     Route: 048
     Dates: start: 20110322, end: 20110426
  2. ZD6474 [Suspect]
     Indication: GLIOBLASTOMA
     Dosage: PATIENT RECEIVED AN EXPIRED STUDY DRUG
     Route: 048
     Dates: start: 20110414, end: 20110511
  3. TEMOZOLOMIDE [Suspect]
     Indication: GLIOBLASTOMA
     Route: 048
     Dates: start: 20110328, end: 20110421
  4. RADIATION THERAPY [Suspect]
     Indication: GLIOBLASTOMA
     Route: 065
     Dates: start: 20110328
  5. ZOFRAN [Concomitant]
  6. VICODIN [Concomitant]
     Dosage: 2 TABLETS DAILY, PRN
     Route: 048
  7. DILAUDID [Concomitant]
  8. PEPCID [Concomitant]
     Dosage: DAILY
  9. ATIVAN [Concomitant]
  10. ACETAMINOPHEN-HYDROCODONE [Concomitant]
  11. GABAPENTIN [Concomitant]

REACTIONS (2)
  - Neutropenia [Unknown]
  - Expired drug administered [Recovered/Resolved]
